FAERS Safety Report 8903936 (Version 7)
Quarter: 2013Q4

REPORT INFORMATION
  Report Type: Spontaneous
  Country: US (occurrence: US)
  Receive Date: 20121113
  Receipt Date: 20131120
  Transmission Date: 20140711
  Serious: Yes (Life-Threatening, Hospitalization, Other)
  Sender: FDA-Public Use
  Company Number: US-009507513-1211USA005315

PATIENT
  Sex: Male
  Weight: 77.98 kg

DRUGS (3)
  1. JANUVIA [Suspect]
     Indication: TYPE 2 DIABETES MELLITUS
     Dosage: 100 MG, QD
     Route: 048
     Dates: start: 20061107, end: 20080607
  2. JANUMET [Suspect]
     Indication: TYPE 2 DIABETES MELLITUS
     Dosage: 50-1000 MG BID
     Route: 048
     Dates: start: 20080606
  3. BYETTA [Suspect]
     Indication: TYPE 2 DIABETES MELLITUS
     Dosage: 5 MICROGRAM, BID
     Dates: start: 20070405, end: 20070505

REACTIONS (37)
  - Pancreatic neuroendocrine tumour [Not Recovered/Not Resolved]
  - Pancreaticoduodenectomy [Recovering/Resolving]
  - Pancreatitis [Unknown]
  - Pancreatic fistula [Unknown]
  - Cholecystectomy [Unknown]
  - Duodenitis [Unknown]
  - Cholecystitis chronic [Unknown]
  - Postoperative wound complication [Recovered/Resolved]
  - Splenomegaly [Unknown]
  - Nephropathy [Not Recovered/Not Resolved]
  - Renal mass [Unknown]
  - Monocytosis [Not Recovered/Not Resolved]
  - Cholangitis [Unknown]
  - Liver disorder [Unknown]
  - Stent placement [Unknown]
  - Erectile dysfunction [Unknown]
  - Lesion excision [Unknown]
  - Nocturia [Unknown]
  - Anxiety [Unknown]
  - Adenoidectomy [Unknown]
  - Tonsillectomy [Unknown]
  - Prostatic dysplasia [Unknown]
  - Influenza like illness [Recovered/Resolved]
  - Skin lesion [Unknown]
  - Genital lesion [Unknown]
  - Biliary anastomosis complication [Unknown]
  - Lymphadenopathy [Unknown]
  - Impaired gastric emptying [Unknown]
  - Autoimmune disorder [Unknown]
  - Gingival swelling [Unknown]
  - Gingival bleeding [Unknown]
  - Pemphigoid [Unknown]
  - Polyarthritis [Not Recovered/Not Resolved]
  - Muscle spasms [Unknown]
  - Leukocytosis [Unknown]
  - Exposure to toxic agent [Unknown]
  - Iron deficiency anaemia [Unknown]
